FAERS Safety Report 12101109 (Version 1)
Quarter: 2016Q1

REPORT INFORMATION
  Report Type: Spontaneous
  Country: US (occurrence: US)
  Receive Date: 20160222
  Receipt Date: 20160222
  Transmission Date: 20160526
  Serious: Yes (Hospitalization, Congenital Anomaly, Other)
  Sender: FDA-Public Use
  Company Number: US-APOTEX-2016AP006743

PATIENT
  Age: 1 Day
  Sex: Female

DRUGS (5)
  1. PAXIL [Suspect]
     Active Substance: PAROXETINE HYDROCHLORIDE
     Indication: ANXIETY
     Dosage: 20 MG, DAILY
     Route: 064
     Dates: end: 2000
  2. PRENATAL                           /00231801/ [Concomitant]
     Active Substance: VITAMINS
     Indication: FOETAL EXPOSURE DURING PREGNANCY
     Dosage: UNK
     Route: 065
  3. PAXIL [Suspect]
     Active Substance: PAROXETINE HYDROCHLORIDE
     Dosage: 10 MG, DAILY
     Route: 064
     Dates: end: 2000
  4. FIORICET [Concomitant]
     Active Substance: ACETAMINOPHEN\BUTALBITAL\CAFFEINE
     Indication: FOETAL EXPOSURE DURING PREGNANCY
     Dosage: UNK
     Route: 065
  5. CARAFATE [Concomitant]
     Active Substance: SUCRALFATE
     Indication: FOETAL EXPOSURE DURING PREGNANCY
     Dosage: UNK
     Route: 065

REACTIONS (14)
  - Anxiety [Unknown]
  - Foetal exposure during pregnancy [Unknown]
  - Deafness [Unknown]
  - Eustachian tube dysfunction [Unknown]
  - Nasal septum deviation [Unknown]
  - Acute sinusitis [Unknown]
  - Congenital aortic valve incompetence [Unknown]
  - Cardiac disorder [Unknown]
  - Pierre Robin syndrome [Unknown]
  - Otitis media chronic [Unknown]
  - Atrial septal defect [Unknown]
  - Cleft lip and palate [Unknown]
  - Bicuspid aortic valve [Unknown]
  - Vascular malformation [Unknown]

NARRATIVE: CASE EVENT DATE: 20000917
